FAERS Safety Report 7251124-5 (Version None)
Quarter: 2011Q1

REPORT INFORMATION
  Report Type: 
  Country: None (occurrence: None)
  Receive Date: 20110128
  Receipt Date: 20110125
  Transmission Date: 20110831
  Serious: Yes (Hospitalization, Other)
  Sender: FDA-Public Use
  Company Number: US-ABBOTT-11P-163-0700583-00

PATIENT
  Sex: Female
  Weight: 96.702 kg

DRUGS (13)
  1. ADVAIR [Concomitant]
     Indication: PRODUCT USED FOR UNKNOWN INDICATION
  2. HYDROXYZINE [Concomitant]
     Indication: PRODUCT USED FOR UNKNOWN INDICATION
  3. VITAMIN D [Concomitant]
     Indication: PRODUCT USED FOR UNKNOWN INDICATION
  4. METHOTREXATE [Concomitant]
     Indication: PRODUCT USED FOR UNKNOWN INDICATION
  5. FOLIC ACID [Concomitant]
     Indication: PRODUCT USED FOR UNKNOWN INDICATION
  6. HYDROCHLOROTHIAZIDE [Concomitant]
     Indication: PRODUCT USED FOR UNKNOWN INDICATION
  7. NABUMETONE [Concomitant]
     Indication: PRODUCT USED FOR UNKNOWN INDICATION
  8. ALBUTEROL [Concomitant]
     Indication: PRODUCT USED FOR UNKNOWN INDICATION
     Route: 055
  9. HUMIRA [Suspect]
     Indication: RHEUMATOID ARTHRITIS
     Route: 058
     Dates: start: 20090801, end: 20101201
  10. PERCOCET [Suspect]
     Indication: PRODUCT USED FOR UNKNOWN INDICATION
     Dates: start: 20101201, end: 20101201
  11. LOSARTAN POTASSIUM [Concomitant]
     Indication: PRODUCT USED FOR UNKNOWN INDICATION
  12. VENTOLIN [Concomitant]
     Indication: PRODUCT USED FOR UNKNOWN INDICATION
  13. VISTARIL [Concomitant]
     Indication: PRODUCT USED FOR UNKNOWN INDICATION
     Dosage: 35MG DAILY

REACTIONS (11)
  - URTICARIA [None]
  - MOBILITY DECREASED [None]
  - PHYSICAL ASSAULT [None]
  - JOINT LOCK [None]
  - LIMB INJURY [None]
  - HYPERSENSITIVITY [None]
  - ANAPHYLACTIC REACTION [None]
  - GAIT DISTURBANCE [None]
  - ANKLE FRACTURE [None]
  - NERVE COMPRESSION [None]
  - ARTHRALGIA [None]
